FAERS Safety Report 6550000-0 (Version None)
Quarter: 2010Q1

REPORT INFORMATION
  Report Type: 
  Country: None (occurrence: None)
  Receive Date: 20100125
  Receipt Date: 20100120
  Transmission Date: 20100710
  Serious: Yes (Hospitalization)
  Sender: FDA-Public Use
  Company Number: NO-BRISTOL-MYERS SQUIBB COMPANY-14942106

PATIENT
  Age: 23 Year
  Sex: Female

DRUGS (8)
  1. ABILIFY [Suspect]
     Indication: PSYCHOTIC DISORDER
     Dosage: INITIALLY TAKEN 15MG INCREASED TO 30MG AFTER EVENT REDUCED TO 20MG, 15MG INCREASED TO 20MG
  2. ABILIFY [Suspect]
     Indication: HALLUCINATION
     Dosage: INITIALLY TAKEN 15MG INCREASED TO 30MG AFTER EVENT REDUCED TO 20MG, 15MG INCREASED TO 20MG
  3. LAMICTAL [Suspect]
     Indication: EPILEPTIC PSYCHOSIS
  4. LAMICTAL [Suspect]
     Indication: MUSCLE SPASMS
  5. SEROQUEL [Suspect]
     Dosage: 1 DF = 25 MGX2
  6. RIVOTRIL [Suspect]
  7. APODORM [Suspect]
  8. IMOVANE [Suspect]

REACTIONS (3)
  - MENTAL IMPAIRMENT [None]
  - NAUSEA [None]
  - VOMITING [None]
